FAERS Safety Report 21854494 (Version 1)
Quarter: 2023Q1

REPORT INFORMATION
  Report Type: Spontaneous
  Country: US (occurrence: None)
  Receive Date: 20230111
  Receipt Date: 20230111
  Transmission Date: 20230417
  Serious: Yes (Other)
  Sender: FDA-Public Use
  Company Number: None

PATIENT
  Age: 78 Year
  Sex: Female
  Weight: 58.5 kg

DRUGS (2)
  1. EVENITY [Suspect]
     Active Substance: ROMOSOZUMAB-AQQG
     Indication: Osteoporosis
     Dosage: 210 MG MONTHLY SUBCUTANEOUS
     Route: 058
     Dates: start: 20220913, end: 20221227
  2. LISINOPRIL [Concomitant]
     Active Substance: LISINOPRIL
     Dates: start: 20190101, end: 20230101

REACTIONS (9)
  - Treatment delayed [None]
  - Rash [None]
  - Erythema [None]
  - Pruritus [None]
  - Asthma [None]
  - Swelling face [None]
  - Throat tightness [None]
  - Choking [None]
  - Angioedema [None]

NARRATIVE: CASE EVENT DATE: 20230101
